FAERS Safety Report 9069853 (Version 1)
Quarter: 2013Q1

REPORT INFORMATION
  Report Type: Report from Study
  Country: US (occurrence: US)
  Receive Date: 20130131
  Receipt Date: 20130131
  Transmission Date: 20140127
  Serious: No
  Sender: FDA-Public Use
  Company Number: US-ABBOTT-12P-163-1000466-00

PATIENT
  Age: 39 Year
  Sex: Female

DRUGS (5)
  1. HUMIRA [Suspect]
     Indication: COLITIS ULCERATIVE
     Dates: start: 20120804, end: 20120930
  2. TOPAMAX [Concomitant]
     Indication: MIGRAINE
     Dosage: 200 MG DAILY
  3. FLUOXETINE [Concomitant]
     Indication: FIBROMYALGIA
     Dosage: 60 MG DAILY
  4. LEVOTHROID [Concomitant]
     Indication: HYPOTHYROIDISM
     Dosage: 75 MG DAILY
  5. TRAMADOL [Concomitant]
     Indication: FIBROMYALGIA
     Dosage: 50 MG, THREE TIMES DAILY AS NEEDED

REACTIONS (1)
  - Drug ineffective [Not Recovered/Not Resolved]
